FAERS Safety Report 21267222 (Version 1)
Quarter: 2022Q3

REPORT INFORMATION
  Report Type: Spontaneous
  Country: CA (occurrence: CA)
  Receive Date: 20220829
  Receipt Date: 20220829
  Transmission Date: 20221027
  Serious: Yes (Death, Hospitalization, Other)
  Sender: FDA-Public Use
  Company Number: CA-ANIPHARMA-2020-CA-001323

PATIENT
  Age: 58 Year
  Sex: Female

DRUGS (8)
  1. ANASTROZOLE [Suspect]
     Active Substance: ANASTROZOLE
     Indication: Breast cancer
     Route: 048
  2. ZOLADEX [Suspect]
     Active Substance: GOSERELIN ACETATE
     Route: 058
  3. TAMOXIFEN [Suspect]
     Active Substance: TAMOXIFEN
     Route: 048
  4. CAPECITABINE [Suspect]
     Active Substance: CAPECITABINE
     Route: 065
  5. AFINITOR [Suspect]
     Active Substance: EVEROLIMUS
     Dosage: 5 MG UNK / 10 MG UNK / 10 MG DAILY
     Route: 048
     Dates: start: 20191103
  6. LETROZOLE [Suspect]
     Active Substance: LETROZOLE
     Route: 065
  7. GOSERELIN [Suspect]
     Active Substance: GOSERELIN
     Route: 065
  8. EVEROLIMUS [Suspect]
     Active Substance: EVEROLIMUS
     Route: 065

REACTIONS (8)
  - Blood bilirubin increased [Fatal]
  - Platelet count decreased [Fatal]
  - Ascites [Fatal]
  - Breast cancer metastatic [Fatal]
  - Malaise [Fatal]
  - Malignant neoplasm progression [Fatal]
  - Platelet count increased [Fatal]
  - Drug ineffective [Fatal]
